FAERS Safety Report 12387995 (Version 1)
Quarter: 2016Q2

REPORT INFORMATION
  Report Type: Spontaneous
  Country: US (occurrence: US)
  Receive Date: 20160520
  Receipt Date: 20160520
  Transmission Date: 20160815
  Serious: Yes (Other)
  Sender: FDA-Public Use
  Company Number: US-TEVA-660508ACC

PATIENT
  Age: 27 Year
  Sex: Female
  Weight: 91.71 kg

DRUGS (2)
  1. PARAGARD T 380A [Suspect]
     Active Substance: COPPER
     Indication: CONTRACEPTION
     Dates: start: 20160314, end: 20160505
  2. PARAGARD T 380A [Suspect]
     Active Substance: COPPER
     Dates: start: 20160505

REACTIONS (2)
  - Device dislocation [Recovered/Resolved]
  - Discomfort [Unknown]

NARRATIVE: CASE EVENT DATE: 20160505
